FAERS Safety Report 15396661 (Version 2)
Quarter: 2025Q3

REPORT INFORMATION
  Report Type: Spontaneous
  Country: EU (occurrence: EU)
  Receive Date: 20180918
  Receipt Date: 20250930
  Transmission Date: 20251021
  Serious: Yes (Hospitalization)
  Sender: MYLAN
  Company Number: EU-MYLANLABS-2018M1065957

PATIENT
  Age: 58 Year
  Sex: Female

DRUGS (9)
  1. METFORMIN [Suspect]
     Active Substance: METFORMIN HYDROCHLORIDE
     Indication: Type 2 diabetes mellitus
  2. PREGABALIN [Suspect]
     Active Substance: PREGABALIN
     Indication: Pain
  3. IOPROMIDE [Suspect]
     Active Substance: IOPROMIDE
     Indication: Scan with contrast
  4. SITAGLIPTIN [Concomitant]
     Active Substance: SITAGLIPTIN
     Indication: Type 2 diabetes mellitus
     Dosage: 50 MILLIGRAM, BID, FOR OVER 3 YEARS
  5. ENALAPRIL [Concomitant]
     Active Substance: ENALAPRIL
     Indication: Chronic kidney disease
     Dosage: 20 MILLIGRAM, QD, FOR OVER 3 YEARS
  6. ENALAPRIL [Concomitant]
     Active Substance: ENALAPRIL
     Indication: Hypertension
  7. SIMVASTATIN [Concomitant]
     Active Substance: SIMVASTATIN
     Indication: Dyslipidaemia
     Dosage: 20 MILLIGRAM, QD, FOR OVER 3 YEARS
  8. EZETIMIBE [Concomitant]
     Active Substance: EZETIMIBE
     Indication: Dyslipidaemia
     Dosage: 10 MILLIGRAM, QD, FOR OVER 3 YEARS
  9. FLUOXETINE [Concomitant]
     Active Substance: FLUOXETINE HYDROCHLORIDE
     Indication: Depression
     Dosage: 20 MILLIGRAM, QD, FOR OVER 3 YEARS

REACTIONS (2)
  - Parkinsonism [Recovered/Resolved]
  - Acute kidney injury [Recovered/Resolved]
